FAERS Safety Report 7090112-9 (Version None)
Quarter: 2010Q4

REPORT INFORMATION
  Report Type: 
  Country: None (occurrence: None)
  Receive Date: 20101105
  Receipt Date: 20101105
  Transmission Date: 20110411
  Serious: Yes (Disabling)
  Sender: FDA-Public Use
  Company Number: None

PATIENT
  Age: 52 Year
  Sex: Male
  Weight: 158.759 kg

DRUGS (1)
  1. ROSUVASTAIN (CRESTOR) ASTRA ZENICA [Suspect]
     Indication: BLOOD CHOLESTEROL INCREASED
     Dosage: 40 MG 1 TABLET 1 TAB BY MOUTH QD
     Route: 048
     Dates: start: 20100209, end: 20100701

REACTIONS (5)
  - ARTHRALGIA [None]
  - INSOMNIA [None]
  - MUSCLE ATROPHY [None]
  - MUSCULOSKELETAL PAIN [None]
  - MYALGIA [None]
